FAERS Safety Report 13484311 (Version 3)
Quarter: 2017Q4

REPORT INFORMATION
  Report Type: Spontaneous
  Country: US (occurrence: US)
  Receive Date: 20170425
  Receipt Date: 20171003
  Transmission Date: 20180320
  Serious: No
  Sender: FDA-Public Use
  Company Number: US-CELGENEUS-USA-20170404721

PATIENT
  Sex: Female

DRUGS (1)
  1. OTEZLA [Suspect]
     Active Substance: APREMILAST
     Indication: PRODUCT USED FOR UNKNOWN INDICATION
     Dosage: 10,20,30 MG
     Route: 048

REACTIONS (6)
  - Dyspnoea [Unknown]
  - Dyspepsia [Unknown]
  - Vision blurred [Recovered/Resolved]
  - Palpitations [Unknown]
  - Blood pressure increased [Unknown]
  - Chest pain [Unknown]
